FAERS Safety Report 5748169-0 (Version None)
Quarter: 2008Q2

REPORT INFORMATION
  Report Type: 
  Country: None (occurrence: None)
  Receive Date: 20080523
  Receipt Date: 20080429
  Transmission Date: 20081010
  Serious: No
  Sender: FDA-Public Use
  Company Number: US-BOEHRINGER INGELHEIM GMBH, GERMANY-2008-BP-06709BP

PATIENT
  Age: 69 Year
  Sex: Male

DRUGS (2)
  1. FLOMAX [Suspect]
     Indication: BENIGN PROSTATIC HYPERPLASIA
     Dates: start: 20080326
  2. ARIS C [Concomitant]
     Indication: ACUTE MYELOID LEUKAEMIA (IN REMISSION)
     Dates: start: 20080201

REACTIONS (1)
  - POLLAKIURIA [None]
